FAERS Safety Report 17893548 (Version 1)
Quarter: 2020Q2

REPORT INFORMATION
  Report Type: Spontaneous
  Country: ES (occurrence: ES)
  Receive Date: 20200615
  Receipt Date: 20200615
  Transmission Date: 20200714
  Serious: Yes (Hospitalization)
  Sender: FDA-Public Use
  Company Number: ES-CADILA HEALTHCARE LIMITED-ES-ZYDUS-027504

PATIENT

DRUGS (5)
  1. XARELTO [Suspect]
     Active Substance: RIVAROXABAN
     Indication: ATRIAL FIBRILLATION
     Dosage: 20 MILLIGRAM,(INTERVAL :1 DAYS)
     Route: 048
     Dates: start: 20160225, end: 20171215
  2. TRAMADOL. [Concomitant]
     Active Substance: TRAMADOL
     Indication: FLANK PAIN
     Dosage: 37.5 MILLIGRAM,(INTERVAL :8 HOURS)
     Route: 048
     Dates: start: 20171125, end: 20171215
  3. METAMIZOL [Concomitant]
     Active Substance: METAMIZOLE SODIUM
     Indication: FLANK PAIN
     Dosage: 575 MILLIGRAM,(INTERVAL :1 DAYS)
     Route: 048
     Dates: start: 20171129, end: 20171215
  4. SERTRALINE [Suspect]
     Active Substance: SERTRALINE HYDROCHLORIDE
     Indication: DEPRESSION
     Dosage: 100 MILLIGRAM,(INTERVAL :1 DAYS)
     Route: 048
     Dates: start: 20161020, end: 20171215
  5. PARACETAMOL [Concomitant]
     Active Substance: ACETAMINOPHEN
     Indication: FLANK PAIN
     Dosage: 1 GRAM,(INTERVAL :8 HOURS)
     Route: 048
     Dates: start: 20171125

REACTIONS (1)
  - Retroperitoneal haematoma [Recovering/Resolving]

NARRATIVE: CASE EVENT DATE: 20171215
